FAERS Safety Report 12392275 (Version 2)
Quarter: 2016Q2

REPORT INFORMATION
  Report Type: Spontaneous
  Country: US (occurrence: US)
  Receive Date: 20160523
  Receipt Date: 20160628
  Transmission Date: 20160815
  Serious: Yes (Other)
  Sender: FDA-Public Use
  Company Number: US-BEH-2016057990

PATIENT
  Sex: Female
  Weight: 52.16 kg

DRUGS (11)
  1. ZEMAIRA [Suspect]
     Active Substance: .ALPHA.1-PROTEINASE INHIBITOR HUMAN
     Indication: ALPHA-1 ANTI-TRYPSIN DEFICIENCY
     Dosage: 991 MG/VL
     Route: 042
     Dates: start: 20120901
  2. PENICILLIN [Concomitant]
     Active Substance: PENICILLIN
  3. DIPHENHYDRAMINE. [Concomitant]
     Active Substance: DIPHENHYDRAMINE
  4. HEPARIN [Concomitant]
     Active Substance: HEPARIN SODIUM
  5. SODIUM CHLORIDE. [Concomitant]
     Active Substance: SODIUM CHLORIDE
  6. ZEMAIRA [Suspect]
     Active Substance: .ALPHA.1-PROTEINASE INHIBITOR HUMAN
     Route: 042
     Dates: start: 20120913
  7. EPIPEN [Concomitant]
     Active Substance: EPINEPHRINE
  8. GLUCOSAMINE [Concomitant]
     Active Substance: GLUCOSAMINE
  9. PROAIR HFA [Concomitant]
     Active Substance: ALBUTEROL SULFATE
  10. KLOR-CON [Concomitant]
     Active Substance: POTASSIUM CHLORIDE
  11. LMX [Concomitant]
     Active Substance: LIDOCAINE

REACTIONS (1)
  - Tooth abscess [Unknown]
